FAERS Safety Report 10774110 (Version 1)
Quarter: 2015Q1

REPORT INFORMATION
  Report Type: Spontaneous
  Country: US (occurrence: US)
  Receive Date: 20150208
  Receipt Date: 20150208
  Transmission Date: 20150721
  Serious: No
  Sender: FDA-Public Use
  Company Number: US-ACORDA-ACO_25093_2011

PATIENT
  Age: 78 Year
  Sex: Female
  Weight: 55.33 kg

DRUGS (8)
  1. POTASSIUM [Concomitant]
     Active Substance: POTASSIUM
     Dosage: UNK
  2. METOPROLOL [Concomitant]
     Active Substance: METOPROLOL
     Dosage: UNK
  3. COLACE [Concomitant]
     Active Substance: DOCUSATE SODIUM
     Dosage: UNK
  4. VITAMIN B12 [Concomitant]
     Active Substance: CYANOCOBALAMIN
  5. AMPYRA [Suspect]
     Active Substance: DALFAMPRIDINE
     Dosage: 1 1/2 TABLETS QD
  6. DIGOXIN. [Concomitant]
     Active Substance: DIGOXIN
  7. B COMPLEX                          /00212701/ [Concomitant]
  8. AMPYRA [Suspect]
     Active Substance: DALFAMPRIDINE
     Indication: MULTIPLE SCLEROSIS
     Dosage: 10 MG, BID
     Route: 048
     Dates: start: 20100722

REACTIONS (2)
  - Inappropriate schedule of drug administration [None]
  - Tremor [Recovering/Resolving]

NARRATIVE: CASE EVENT DATE: 201101
